FAERS Safety Report 9417532 (Version 1)
Quarter: 2013Q3

REPORT INFORMATION
  Report Type: Spontaneous
  Country: US (occurrence: US)
  Receive Date: 20130724
  Receipt Date: 20130724
  Transmission Date: 20140515
  Serious: No
  Sender: FDA-Public Use
  Company Number: US-BRISTOL-MYERS SQUIBB COMPANY-19042522

PATIENT
  Age: 52 Year
  Sex: Female

DRUGS (1)
  1. ELIQUIS [Suspect]
     Dosage: DOSE REDUCED TO 2.5 MG.

REACTIONS (1)
  - Vaginal haemorrhage [Recovering/Resolving]
